FAERS Safety Report 6711580-5 (Version None)
Quarter: 2010Q2

REPORT INFORMATION
  Report Type: 
  Country: None (occurrence: None)
  Receive Date: 20100505
  Receipt Date: 20100427
  Transmission Date: 20101027
  Serious: Yes (Hospitalization)
  Sender: FDA-Public Use
  Company Number: PHHO2008BR07201

PATIENT
  Sex: Male
  Weight: 50 kg

DRUGS (3)
  1. CERTICAN [Suspect]
     Indication: RENAL TRANSPLANT
     Dosage: 3 MG BID
     Route: 048
     Dates: start: 20091006
  2. CERTICAN [Suspect]
     Dosage: UNK
  3. AEB071 AEB+ [Suspect]
     Indication: RENAL TRANSPLANT
     Dosage: 600 MG DAILY
     Route: 048
     Dates: start: 20080528

REACTIONS (4)
  - ANAEMIA [None]
  - INCISIONAL HERNIA [None]
  - INCISIONAL HERNIA REPAIR [None]
  - MELAENA [None]
